FAERS Safety Report 8984442 (Version 2)
Quarter: 2013Q1

REPORT INFORMATION
  Report Type: Spontaneous
  Country: FR (occurrence: FR)
  Receive Date: 20121225
  Receipt Date: 20130301
  Transmission Date: 20140127
  Serious: Yes (Hospitalization)
  Sender: FDA-Public Use
  Company Number: FR-SANOFI-AVENTIS-2012SA092354

PATIENT
  Age: 87 Year
  Sex: Female

DRUGS (7)
  1. LASILIX [Suspect]
     Indication: PRODUCT USED FOR UNKNOWN INDICATION
     Route: 065
     Dates: end: 20121125
  2. ROCEPHIN [Suspect]
     Indication: PERTUSSIS
     Route: 065
     Dates: start: 20121116, end: 20121126
  3. ZECLAR [Concomitant]
     Dosage: STRENGTH:500 MG
     Dates: start: 20121120, end: 20121123
  4. KAYEXALATE [Concomitant]
     Dates: start: 20121121, end: 20121123
  5. TAVANIC [Concomitant]
     Dates: start: 20121119, end: 20121129
  6. MONO-TILDIEM [Concomitant]
     Dosage: STRENGTH: 300 MG
     Dates: start: 20121123
  7. ALBUMIN [Concomitant]
     Dates: start: 20121121, end: 20121123

REACTIONS (4)
  - Erythema multiforme [Recovered/Resolved]
  - Mouth ulceration [Recovered/Resolved]
  - Eosinophilia [Recovered/Resolved]
  - Blood creatinine increased [Recovered/Resolved]
